FAERS Safety Report 16116161 (Version 2)
Quarter: 2019Q2

REPORT INFORMATION
  Report Type: Spontaneous
  Country: BR (occurrence: BR)
  Receive Date: 20190326
  Receipt Date: 20190403
  Transmission Date: 20190711
  Serious: Yes (Other)
  Sender: FDA-Public Use
  Company Number: BR-SA-2019SA079321

PATIENT
  Sex: Female

DRUGS (1)
  1. SOLIQUA 100/33 [Suspect]
     Active Substance: INSULIN GLARGINE\LIXISENATIDE
     Dosage: UNK, QOD
     Route: 065

REACTIONS (4)
  - Blood glucose abnormal [Unknown]
  - Intentional product use issue [Unknown]
  - Cerebrovascular accident [Unknown]
  - Infarction [Unknown]

NARRATIVE: CASE EVENT DATE: 20190317
